FAERS Safety Report 12907367 (Version 1)
Quarter: 2016Q4

REPORT INFORMATION
  Report Type: Spontaneous
  Country: US (occurrence: US)
  Receive Date: 20161103
  Receipt Date: 20161103
  Transmission Date: 20170207
  Serious: No
  Sender: FDA-Public Use
  Company Number: US-BAYER-2016-203765

PATIENT
  Age: 66 Year
  Sex: Female

DRUGS (1)
  1. CLIMARA [Suspect]
     Active Substance: ESTRADIOL
     Indication: OESTROGEN REPLACEMENT THERAPY
     Dosage: UNK
     Route: 062
     Dates: start: 2006

REACTIONS (2)
  - Drug ineffective [None]
  - Feeling of body temperature change [None]

NARRATIVE: CASE EVENT DATE: 20161016
